FAERS Safety Report 8545695-6 (Version None)
Quarter: 2012Q3

REPORT INFORMATION
  Report Type: 
  Country: None (occurrence: None)
  Receive Date: 20120727
  Receipt Date: 20120725
  Transmission Date: 20120928
  Serious: Yes (Other)
  Sender: FDA-Public Use
  Company Number: CHPA2012US016079

PATIENT
  Age: 29 Year
  Sex: Female

DRUGS (3)
  1. VOLTAREN [Suspect]
     Indication: NECK PAIN
     Dosage: UNK, UNK
     Route: 061
     Dates: start: 20120724
  2. HEPARIN [Concomitant]
     Dosage: UNK
     Route: 041
     Dates: start: 20120101
  3. WARFARIN SODIUM [Concomitant]
     Dosage: UNK
     Dates: start: 20120101

REACTIONS (6)
  - APPLICATION SITE PRURITUS [None]
  - DYSPNOEA [None]
  - OFF LABEL USE [None]
  - WRONG TECHNIQUE IN DRUG USAGE PROCESS [None]
  - CHEST DISCOMFORT [None]
  - DRUG ADMINISTERED AT INAPPROPRIATE SITE [None]
